FAERS Safety Report 7296835-0 (Version None)
Quarter: 2011Q1

REPORT INFORMATION
  Report Type: 
  Country: None (occurrence: None)
  Receive Date: 20110216
  Receipt Date: 20101123
  Transmission Date: 20110831
  Serious: No
  Sender: FDA-Public Use
  Company Number: US-BAYER-2010-007991

PATIENT
  Sex: Female
  Weight: 49 kg

DRUGS (2)
  1. ALEVE (CAPLET) [Suspect]
     Indication: DYSMENORRHOEA
  2. ALEVE (CAPLET) [Suspect]
     Indication: HEADACHE
     Dosage: DAILY DOSE 4 DF
     Route: 048
     Dates: start: 20101123

REACTIONS (2)
  - DECREASED APPETITE [None]
  - SOMNOLENCE [None]
